FAERS Safety Report 13542379 (Version 1)
Quarter: 2017Q2

REPORT INFORMATION
  Report Type: Spontaneous
  Country: US (occurrence: US)
  Receive Date: 20170512
  Receipt Date: 20170512
  Transmission Date: 20170830
  Serious: Yes (Other)
  Sender: FDA-Public Use
  Company Number: US-ROCHE-700739

PATIENT
  Age: 56 Year
  Sex: Female
  Weight: 145 kg

DRUGS (2)
  1. PACLITAXEL. [Suspect]
     Active Substance: PACLITAXEL
     Indication: BREAST CANCER METASTATIC
     Route: 065
  2. AVASTIN [Suspect]
     Active Substance: BEVACIZUMAB
     Indication: BREAST CANCER METASTATIC
     Route: 042

REACTIONS (4)
  - Sinusitis [Recovering/Resolving]
  - Ill-defined disorder [Unknown]
  - Productive cough [Unknown]
  - Haemorrhage [Unknown]

NARRATIVE: CASE EVENT DATE: 20100320
